FAERS Safety Report 19037479 (Version 1)
Quarter: 2021Q1

REPORT INFORMATION
  Report Type: Spontaneous
  Country: US (occurrence: US)
  Receive Date: 20210319
  Receipt Date: 20210319
  Transmission Date: 20210420
  Serious: No
  Sender: FDA-Public Use
  Company Number: None

PATIENT
  Age: 42 Year
  Sex: Female
  Weight: 87 kg

DRUGS (1)
  1. ERENUMAB?AOOE (ERENUMAB?AOOE 70MG/ML AUOINJECTOR, 1 ML) [Suspect]
     Active Substance: ERENUMAB-AOOE
     Indication: MIGRAINE
     Dosage: ?          OTHER STRENGTH:70MG/ML, 1ML;?
     Route: 058
     Dates: start: 20200420, end: 20210317

REACTIONS (2)
  - Dizziness [None]
  - Palpitations [None]

NARRATIVE: CASE EVENT DATE: 20210317
